FAERS Safety Report 17360819 (Version 4)
Quarter: 2020Q1

REPORT INFORMATION
  Report Type: Spontaneous
  Country: US (occurrence: US)
  Receive Date: 20200203
  Receipt Date: 20200205
  Transmission Date: 20200409
  Serious: Yes (Other)
  Sender: FDA-Public Use
  Company Number: US-SHIRE-US202003742

PATIENT
  Sex: Female

DRUGS (3)
  1. NATPARA (PARATHYROID HORMONE) [Suspect]
     Active Substance: PARATHYROID HORMONE
     Indication: HYPOPARATHYROIDISM
     Dosage: UNK UNK, UNKNOWN
     Route: 065
     Dates: start: 201506, end: 2019
  2. CALCITRIOL. [Concomitant]
     Active Substance: CALCITRIOL
     Indication: PRODUCT USED FOR UNKNOWN INDICATION
  3. VIT D [Concomitant]
     Active Substance: VITAMIN D NOS
     Indication: PRODUCT USED FOR UNKNOWN INDICATION

REACTIONS (12)
  - Tetany [Unknown]
  - Recalled product [Unknown]
  - Feeling abnormal [Unknown]
  - Anxiety [Unknown]
  - Nocturia [Unknown]
  - Nausea [Unknown]
  - Paraesthesia [Unknown]
  - Polyuria [Unknown]
  - Gastroenteritis viral [Unknown]
  - Fatigue [Unknown]
  - Vertigo [Unknown]
  - Arthralgia [Unknown]
